FAERS Safety Report 5652411-4 (Version None)
Quarter: 2008Q1

REPORT INFORMATION
  Report Type: 
  Country: None (occurrence: None)
  Receive Date: 20080305
  Receipt Date: 20080305
  Transmission Date: 20080703
  Serious: No
  Sender: FDA-Public Use
  Company Number: None

PATIENT
  Sex: Female

DRUGS (7)
  1. AMBIEN [Suspect]
  2. LUNESTA [Suspect]
  3. TRAZADONE MG + DATE UNKNOWN [Suspect]
  4. PAXIL [Concomitant]
  5. VALIUM [Concomitant]
  6. TOPAMAX [Concomitant]
  7. SEROQUEL [Concomitant]

REACTIONS (3)
  - CHEST PAIN [None]
  - HYPERHIDROSIS [None]
  - VOMITING [None]
